FAERS Safety Report 5890489-3 (Version None)
Quarter: 2008Q3

REPORT INFORMATION
  Report Type: 
  Country: None (occurrence: None)
  Receive Date: 20080918
  Receipt Date: 20080904
  Transmission Date: 20090109
  Serious: Yes (Hospitalization)
  Sender: FDA-Public Use
  Company Number: S08-SWI-02295-01

PATIENT
  Age: 66 Year
  Sex: Male

DRUGS (6)
  1. MEMANTINE HCL [Suspect]
     Indication: DEMENTIA
     Dosage: 15 MG (15 MG, 1 IN 1 D), ORAL
     Route: 048
     Dates: start: 20080212, end: 20080601
  2. CYMBALTA (60 MILLIGRAM, TABLETS) [Concomitant]
  3. PRAZINE (PROMAZINE HYDROCHLORIDE) (25 MILLIGRAM, TABLETS) (PROMAZINE H [Concomitant]
  4. XANAX (ALPRAZOLAM) (1 MILLIGRAM, TABLETS) (ALPRAZOLAM) [Concomitant]
  5. RISPERDAL (RISPERIDONE) (0.5 MILLIGRAM, TABLETS) (RISPERIDONE) [Concomitant]
  6. REMERON (MIRTAZAPINE) (30 MILLIGRAM, TABLETS) (MIRTAZAPINE) [Concomitant]

REACTIONS (3)
  - ANHEDONIA [None]
  - DEPRESSION [None]
  - HYPOMANIA [None]
